FAERS Safety Report 18308311 (Version 1)
Quarter: 2020Q3

REPORT INFORMATION
  Report Type: Spontaneous
  Country: FR (occurrence: FR)
  Receive Date: 20200924
  Receipt Date: 20200924
  Transmission Date: 20201103
  Serious: Yes (Other)
  Sender: FDA-Public Use
  Company Number: FR-DSJP-DSE-2020-127383

PATIENT
  Age: 61 Year
  Sex: Male

DRUGS (2)
  1. MEDIATOR [Suspect]
     Active Substance: BENFLUOREX
     Indication: OVERWEIGHT
     Dosage: 3 DF
     Route: 048
     Dates: start: 2002, end: 2009
  2. OLMETEC [Suspect]
     Active Substance: OLMESARTAN MEDOXOMIL
     Indication: HYPERTENSION
     Dosage: 10 MG
     Route: 048
     Dates: start: 2013

REACTIONS (1)
  - Cardiac valve disease [Not Recovered/Not Resolved]

NARRATIVE: CASE EVENT DATE: 2020
